FAERS Safety Report 8508114-1 (Version None)
Quarter: 2012Q3

REPORT INFORMATION
  Report Type: 
  Country: None (occurrence: None)
  Receive Date: 20120713
  Receipt Date: 20120709
  Transmission Date: 20120928
  Serious: Yes (Life-Threatening, Hospitalization)
  Sender: FDA-Public Use
  Company Number: JP-SHIRE-ALL1-2011-04448

PATIENT
  Age: 57 Year
  Sex: Male

DRUGS (22)
  1. NORVASC [Concomitant]
     Dosage: 5 MG, UNKNOWN
     Route: 048
     Dates: start: 20110426, end: 20111021
  2. OMEPRAZOLE [Concomitant]
     Indication: PRODUCT USED FOR UNKNOWN INDICATION
     Dosage: 10 MG, UNKNOWN
     Route: 048
  3. MICARDIS [Concomitant]
     Dosage: 120 MG, 1X/WEEK
     Route: 048
     Dates: start: 20111001
  4. FOSRENOL [Suspect]
     Dosage: 1500 MG DAILY
     Route: 048
     Dates: start: 20100206, end: 20101126
  5. MUCODYNE [Concomitant]
     Indication: PRODUCTIVE COUGH
     Dosage: UNK, UNKNOWN
     Route: 048
     Dates: start: 20110820
  6. BROTIZOLAN [Concomitant]
     Indication: INSOMNIA
     Dosage: 0.25 MG, UNKNOWN
     Route: 048
     Dates: start: 20090207
  7. MICARDIS [Concomitant]
     Indication: BLOOD PRESSURE INCREASED
     Dosage: 320 MG, 1X/WEEK
     Route: 048
     Dates: start: 20111001
  8. MUCOSOLVAN [Concomitant]
     Indication: PRODUCTIVE COUGH
     Dosage: 45 MG, UNKNOWN
     Route: 048
  9. FOSRENOL [Suspect]
     Dosage: 1000MG DAILY
     Route: 048
     Dates: start: 20101127, end: 20111016
  10. PURSENNID                          /00142207/ [Suspect]
     Indication: CONSTIPATION PROPHYLAXIS
     Dosage: 36 MG, UNKNOWN
     Route: 048
     Dates: start: 20100116
  11. SELBEX [Concomitant]
     Indication: PRODUCT USED FOR UNKNOWN INDICATION
     Dosage: 150 MG, UNKNOWN
     Route: 048
  12. NESPO [Concomitant]
     Indication: PRODUCT USED FOR UNKNOWN INDICATION
     Dosage: 10 ?G, UNKNOWN
     Route: 042
  13. FOSRENOL [Suspect]
     Indication: HYPERPHOSPHATAEMIA
     Dosage: 750MG  DAILY
     Route: 048
     Dates: start: 20100116, end: 20100205
  14. ALLEGRA [Concomitant]
     Indication: PRURITUS
     Dosage: 120 MG, UNKNOWN
     Route: 048
     Dates: start: 20100702
  15. RABEPRAZOLE SODIUM [Concomitant]
     Indication: HYPERCHLORHYDRIA
     Dosage: UNK, UNKNOWN
     Route: 048
     Dates: start: 20111015
  16. CALCIUM CARBONATE [Concomitant]
     Dosage: UNK, OTHER (6 TAB)
     Route: 048
     Dates: start: 20100828, end: 20101008
  17. NEO MINOPHAGEN C [Concomitant]
     Indication: PRODUCT USED FOR UNKNOWN INDICATION
     Dosage: UNK, ONE DOSE
     Route: 041
  18. CALCIUM CARBONATE [Concomitant]
     Dosage: UNK, OTHER (3 TAB)
     Route: 048
     Dates: start: 20101009
  19. PURSENNID                          /00142207/ [Suspect]
     Dosage: UNK UNK, UNKNOWN
     Route: 048
     Dates: start: 20110426
  20. CALCIUM CARBONATE [Concomitant]
     Indication: HYPERPHOSPHATAEMIA
     Dosage: UNK UNK, OTHER (3 TAB)
     Route: 048
     Dates: start: 20100227, end: 20100827
  21. TAMSULOSIN HCL [Concomitant]
     Indication: DYSURIA
     Dosage: 0.2 MG, UNKNOWN
     Route: 048
     Dates: start: 20030422
  22. NORVASC [Concomitant]
     Indication: BLOOD PRESSURE INCREASED
     Dosage: 5 MG, UNKNOWN
     Route: 048
     Dates: start: 20100102

REACTIONS (2)
  - SMALL INTESTINAL PERFORATION [None]
  - WRONG TECHNIQUE IN DRUG USAGE PROCESS [None]
